FAERS Safety Report 4361027-1 (Version None)
Quarter: 2004Q2

REPORT INFORMATION
  Report Type: 
  Country: None (occurrence: None)
  Receive Date: 20040517
  Receipt Date: 20040506
  Transmission Date: 20050107
  Serious: Yes (Hospitalization)
  Sender: FDA-Public Use
  Company Number: 206456

PATIENT
  Age: 75 Year
  Sex: Female
  Weight: 80 kg

DRUGS (4)
  1. HERCEPTIN (TRASTUZUMAB) PWDR + SOLVENT,INFUSION SOLN,440MG [Suspect]
     Dosage: 584 MG
     Dates: start: 20040211, end: 20040305
  2. DOCETAXEL (DOCETAXEL) [Suspect]
     Dosage: 170 MG
     Dates: start: 20040211, end: 20040305
  3. DIAMICRON (GLICLAZIDE) [Concomitant]
  4. ADIRO (ASPIRIN) [Concomitant]

REACTIONS (4)
  - ATRIAL FIBRILLATION [None]
  - CARDIAC FAILURE CONGESTIVE [None]
  - DIARRHOEA [None]
  - RENAL FAILURE ACUTE [None]
